FAERS Safety Report 19598439 (Version 2)
Quarter: 2021Q3

REPORT INFORMATION
  Report Type: Report from Study
  Country: MX (occurrence: MX)
  Receive Date: 20210723
  Receipt Date: 20210805
  Transmission Date: 20211014
  Serious: Yes (Other)
  Sender: FDA-Public Use
  Company Number: NVSC2021MX165343

PATIENT
  Sex: Male
  Weight: 100 kg

DRUGS (1)
  1. EXFORGE HCT [Suspect]
     Active Substance: AMLODIPINE BESYLATE\HYDROCHLOROTHIAZIDE\VALSARTAN
     Indication: HYPERTENSION
     Dosage: 1 DF, QD, STARTED 1 YEAR AGO APPROXIMATELY
     Route: 048

REACTIONS (7)
  - Pain [Unknown]
  - Pain in extremity [Unknown]
  - Haemorrhoids [Not Recovered/Not Resolved]
  - Haemorrhage [Unknown]
  - Exostosis [Unknown]
  - Ill-defined disorder [Unknown]
  - Discomfort [Unknown]
